FAERS Safety Report 4586914-0 (Version None)
Quarter: 2005Q1

REPORT INFORMATION
  Report Type: 
  Country: None (occurrence: None)
  Receive Date: 20050215
  Receipt Date: 20050215
  Transmission Date: 20050727
  Serious: Yes (Other)
  Sender: FDA-Public Use
  Company Number: None

PATIENT
  Sex: Female
  Weight: 63.5036 kg

DRUGS (6)
  1. FACTIVE [Suspect]
     Indication: CHRONIC OBSTRUCTIVE AIRWAYS DISEASE EXACERBATED
     Dosage: ONE  DAILY    ORAL
     Route: 048
     Dates: start: 20050202, end: 20050202
  2. ADVAIR DISKUS 100/50 [Concomitant]
  3. FIORICET [Concomitant]
  4. MOBIC [Concomitant]
  5. FLEXERIL [Concomitant]
  6. PREDNISONE [Concomitant]

REACTIONS (1)
  - URTICARIA [None]
